FAERS Safety Report 23454839 (Version 1)
Quarter: 2024Q1

REPORT INFORMATION
  Report Type: Spontaneous
  Country: US (occurrence: US)
  Receive Date: 20240130
  Receipt Date: 20240130
  Transmission Date: 20240410
  Serious: No
  Sender: FDA-Public Use
  Company Number: US-TAKEDA-2024TUS007858

PATIENT
  Sex: Male

DRUGS (1)
  1. GAMMAGARD LIQUID [Suspect]
     Active Substance: HUMAN IMMUNOGLOBULIN G
     Indication: Demyelinating polyneuropathy
     Dosage: 75 GRAM, Q2WEEKS
     Route: 065

REACTIONS (2)
  - Product contamination [Unknown]
  - Poor quality product administered [Unknown]
